FAERS Safety Report 5744714-X (Version None)
Quarter: 2008Q2

REPORT INFORMATION
  Report Type: 
  Country: None (occurrence: None)
  Receive Date: 20080520
  Receipt Date: 20080505
  Transmission Date: 20081010
  Serious: Yes (Hospitalization)
  Sender: FDA-Public Use
  Company Number: IT-GENENTECH-260519

PATIENT
  Age: 47 Year
  Sex: Male

DRUGS (3)
  1. OMALIZUMAB [Suspect]
     Indication: FOOD ALLERGY
     Dosage: 375 MG, Q2W
     Route: 058
  2. STEROID NOS [Concomitant]
     Indication: ASTHMA
     Route: 042
  3. AZATHIOPRINE [Concomitant]
     Indication: ASTHMA

REACTIONS (1)
  - ALLERGIC GRANULOMATOUS ANGIITIS [None]
